FAERS Safety Report 26155603 (Version 1)
Quarter: 2025Q4

REPORT INFORMATION
  Report Type: Spontaneous
  Country: HK (occurrence: HK)
  Receive Date: 20251215
  Receipt Date: 20251215
  Transmission Date: 20260118
  Serious: Yes (Other)
  Sender: ALKEM
  Company Number: HK-ALKEM LABORATORIES LIMITED-HK-ALKEM-2025-11433

PATIENT

DRUGS (1)
  1. TACROLIMUS [Suspect]
     Active Substance: TACROLIMUS
     Indication: Immunosuppressant drug therapy
     Dosage: UNK
     Route: 065

REACTIONS (2)
  - Nocardiosis [Unknown]
  - Skin mass [Unknown]
